FAERS Safety Report 7699878-8 (Version None)
Quarter: 2011Q3

REPORT INFORMATION
  Report Type: 
  Country: None (occurrence: None)
  Receive Date: 20110822
  Receipt Date: 20110808
  Transmission Date: 20111222
  Serious: Yes (Hospitalization)
  Sender: FDA-Public Use
  Company Number: US-MYLANLABS-2011S1016489

PATIENT
  Age: 23 Year
  Sex: Male

DRUGS (7)
  1. IFOSFAMIDE [Suspect]
     Indication: HODGKIN'S DISEASE
     Route: 065
  2. VINBLASTINE SULFATE [Suspect]
     Indication: HODGKIN'S DISEASE
     Route: 065
  3. CARBOPLATIN [Suspect]
     Indication: HODGKIN'S DISEASE
     Route: 065
  4. DOXORUBICIN HCL [Suspect]
     Indication: HODGKIN'S DISEASE
     Route: 065
  5. BLEOMYCIN SULFATE [Suspect]
     Indication: HODGKIN'S DISEASE
     Route: 065
  6. DACARBAZINE [Suspect]
     Indication: HODGKIN'S DISEASE
     Route: 065
  7. ETOPOSIDE [Suspect]
     Indication: HODGKIN'S DISEASE
     Route: 065

REACTIONS (1)
  - INTERSTITIAL LUNG DISEASE [None]
